FAERS Safety Report 16378983 (Version 2)
Quarter: 2020Q3

REPORT INFORMATION
  Report Type: Spontaneous
  Country: US (occurrence: US)
  Receive Date: 20190531
  Receipt Date: 20200713
  Transmission Date: 20201102
  Serious: Yes (Death, Hospitalization)
  Sender: FDA-Public Use
  Company Number: US-JNJFOC-20190525381

PATIENT
  Age: 77 Year
  Sex: Female

DRUGS (1)
  1. XARELTO [Suspect]
     Active Substance: RIVAROXABAN
     Indication: DEEP VEIN THROMBOSIS
     Route: 048
     Dates: start: 201502

REACTIONS (4)
  - Underdose [Unknown]
  - Subdural haematoma [Recovering/Resolving]
  - Off label use [Unknown]
  - Haematemesis [Recovering/Resolving]

NARRATIVE: CASE EVENT DATE: 201502
